FAERS Safety Report 8488447 (Version 2)
Quarter: 2013Q1

REPORT INFORMATION
  Report Type: Spontaneous
  Country: US (occurrence: US)
  Receive Date: 20120402
  Receipt Date: 20130304
  Transmission Date: 20140127
  Serious: No
  Sender: FDA-Public Use
  Company Number: US-ABBOTT-11P-163-0804641-00

PATIENT
  Sex: Male

DRUGS (2)
  1. ANDROGEL [Suspect]
     Indication: PRODUCT USED FOR UNKNOWN INDICATION
     Dosage: DAILY DOSE:  UNKNOWN, FORM: STICKS
     Route: 062
     Dates: start: 2011
  2. ANDROGEL [Suspect]
     Dosage: DAILY DOSE:  UNKNOWN, FORM: STICKS
     Route: 062

REACTIONS (4)
  - Drug ineffective [Unknown]
  - Product quality issue [Unknown]
  - Asthenia [Unknown]
  - Blood testosterone decreased [Unknown]
